FAERS Safety Report 5919377-0 (Version None)
Quarter: 2008Q4

REPORT INFORMATION
  Report Type: 
  Country: None (occurrence: None)
  Receive Date: 20081015
  Receipt Date: 20081009
  Transmission Date: 20090506
  Serious: Yes (Death, Hospitalization)
  Sender: FDA-Public Use
  Company Number: B0537944A

PATIENT
  Age: 62 Year
  Sex: Female

DRUGS (5)
  1. HYCAMTIN [Suspect]
     Indication: OVARIAN CANCER
     Dosage: 1.15MG CYCLIC
     Route: 042
     Dates: start: 20080610, end: 20080913
  2. CISPLATIN [Suspect]
     Indication: OVARIAN CANCER
     Dosage: 78MG CYCLIC
     Route: 042
     Dates: start: 20080610, end: 20080913
  3. ONDANSETRON [Concomitant]
     Indication: VOMITING
  4. RANITIDINE [Concomitant]
     Indication: VOMITING
  5. DESAMETASONE [Concomitant]
     Indication: VOMITING

REACTIONS (1)
  - ABDOMINAL PAIN [None]
